FAERS Safety Report 10086352 (Version 1)
Quarter: 2014Q2

REPORT INFORMATION
  Report Type: Report from Study
  Country: CA (occurrence: CA)
  Receive Date: 20140418
  Receipt Date: 20140418
  Transmission Date: 20141212
  Serious: Yes (Hospitalization)
  Sender: FDA-Public Use
  Company Number: CA-JNJFOC-20140408548

PATIENT
  Age: 43 Year
  Sex: Female
  Weight: 114 kg

DRUGS (1)
  1. REMICADE [Suspect]
     Indication: PSORIATIC ARTHROPATHY
     Dosage: FOR 52 WEEKS
     Route: 042
     Dates: start: 20101201

REACTIONS (2)
  - Cerebrovascular accident [Unknown]
  - Obstruction [Unknown]
